FAERS Safety Report 9374218 (Version 1)
Quarter: 2013Q2

REPORT INFORMATION
  Report Type: Spontaneous
  Country: US (occurrence: None)
  Receive Date: 20130627
  Receipt Date: 20130627
  Transmission Date: 20140414
  Serious: No
  Sender: FDA-Public Use
  Company Number: None

PATIENT
  Sex: Male

DRUGS (1)
  1. TECFIDERA [Suspect]
     Indication: MULTIPLE SCLEROSIS
     Route: 048
     Dates: start: 20130503

REACTIONS (6)
  - Flushing [None]
  - Abdominal discomfort [None]
  - Diarrhoea [None]
  - Hyperhidrosis [None]
  - Tremor [None]
  - Night sweats [None]
